FAERS Safety Report 22645886 (Version 1)
Quarter: 2023Q2

REPORT INFORMATION
  Report Type: Spontaneous
  Country: US (occurrence: None)
  Receive Date: 20230626
  Receipt Date: 20230626
  Transmission Date: 20230722
  Serious: No
  Sender: FDA-Public Use
  Company Number: None

PATIENT
  Sex: Female
  Weight: 89.4 kg

DRUGS (6)
  1. LENVIMA [Suspect]
     Active Substance: LENVATINIB
     Indication: Endometrial cancer
     Dosage: FREQUENCY : DAILY;?
     Route: 048
     Dates: start: 20230420, end: 20230623
  2. DULOXETINE [Concomitant]
     Active Substance: DULOXETINE
  3. ENALAPRIL [Concomitant]
     Active Substance: ENALAPRIL
  4. LEVOTHYROXINE [Concomitant]
     Active Substance: LEVOTHYROXINE
  5. LORATADINE [Concomitant]
     Active Substance: LORATADINE
  6. KEYTRUDA [Concomitant]
     Active Substance: PEMBROLIZUMAB

REACTIONS (6)
  - Cough [None]
  - Nausea [None]
  - Haematemesis [None]
  - Therapy interrupted [None]
  - Endometrial cancer [None]
  - Malignant neoplasm progression [None]
